FAERS Safety Report 9159835 (Version 2)
Quarter: 2013Q1

REPORT INFORMATION
  Report Type: Spontaneous
  Country: US (occurrence: None)
  Receive Date: 20130219
  Receipt Date: 20130307
  Transmission Date: 20140127
  Serious: Yes (Other)
  Sender: FDA-Public Use
  Company Number: 2013SA012216

PATIENT
  Age: 34 Year
  Sex: Female
  Weight: 68.94 kg

DRUGS (6)
  1. ASPERCREME / UNKNOWN / UNKNOWN [Suspect]
     Indication: BACK PAIN
     Dates: start: 20130205, end: 20130205
  2. FENTANYL [Concomitant]
  3. ZOLPIDEM [Concomitant]
  4. OXYCODONE [Concomitant]
  5. ZOFRAN [Concomitant]
  6. REQUIP [Concomitant]

REACTIONS (2)
  - Application site pain [None]
  - Application site vesicles [None]
